FAERS Safety Report 4913226-5 (Version None)
Quarter: 2006Q1

REPORT INFORMATION
  Report Type: 
  Country: None (occurrence: None)
  Receive Date: 20060210
  Receipt Date: 20060207
  Transmission Date: 20060701
  Serious: Yes (Life-Threatening)
  Sender: FDA-Public Use
  Company Number: MK200601-0312-1

PATIENT
  Age: 63 Year
  Sex: Female

DRUGS (9)
  1. OPTIRAY 350 [Suspect]
     Indication: CARDIOVASCULAR EVALUATION
     Dosage: 28.7 ML ONCE
     Dates: start: 20051215, end: 20051215
  2. HEPARIN [Concomitant]
  3. FOSFOMYCIN [Concomitant]
  4. ASPIRIN [Concomitant]
  5. TICLOPIDINE HYDROCHL [Concomitant]
  6. LANSOPRAZOLE [Concomitant]
  7. ATORVASTATIN CALCIUM [Concomitant]
  8. BERAPROST [Concomitant]
  9. ISOSORBIDE DINITRATE [Concomitant]

REACTIONS (2)
  - ANAPHYLACTIC SHOCK [None]
  - BRADYCARDIA [None]
